FAERS Safety Report 22303611 (Version 1)
Quarter: 2023Q2

REPORT INFORMATION
  Report Type: Spontaneous
  Country: US (occurrence: None)
  Receive Date: 20230509
  Receipt Date: 20230509
  Transmission Date: 20230722
  Serious: Yes (Hospitalization)
  Sender: FDA-Public Use
  Company Number: None

PATIENT
  Age: 57 Year
  Sex: Male

DRUGS (10)
  1. DIMETHYL FUMARATE [Suspect]
     Active Substance: DIMETHYL FUMARATE
     Indication: Multiple sclerosis
     Dosage: FREQUENCY : TWICE A DAY;?
     Route: 048
     Dates: start: 20211012
  2. QUETIAPINE [Concomitant]
     Active Substance: QUETIAPINE
  3. NIFEDIPINE [Concomitant]
     Active Substance: NIFEDIPINE
  4. CALCIUM ACETATE [Concomitant]
     Active Substance: CALCIUM ACETATE
  5. GABAPENTIN [Concomitant]
     Active Substance: GABAPENTIN
  6. TERAZOSIN [Concomitant]
     Active Substance: TERAZOSIN HYDROCHLORIDE
  7. CARVEDILOL [Concomitant]
     Active Substance: CARVEDILOL
  8. CLONIDINE [Concomitant]
     Active Substance: CLONIDINE
  9. CETIRIZINE [Concomitant]
     Active Substance: CETIRIZINE HYDROCHLORIDE
  10. CINACALCET [Concomitant]
     Active Substance: CINACALCET

REACTIONS (2)
  - Haematological infection [None]
  - Cystitis [None]

NARRATIVE: CASE EVENT DATE: 20230506
